FAERS Safety Report 9676436 (Version 1)
Quarter: 2013Q4

REPORT INFORMATION
  Report Type: Spontaneous
  Country: US (occurrence: US)
  Receive Date: 20131107
  Receipt Date: 20131107
  Transmission Date: 20140711
  Serious: Yes (Disabling, Other)
  Sender: FDA-Public Use
  Company Number: CHPA2013US016540

PATIENT
  Age: 80 Year
  Sex: Male

DRUGS (3)
  1. THERAPEUTIC MINERAL ICE [Suspect]
     Indication: ARTHROPOD BITE
     Dosage: UNK, PRN
     Route: 061
  2. THERAPEUTIC MINERAL ICE [Suspect]
     Indication: SKIN IRRITATION
  3. THERAPEUTIC MINERAL ICE [Suspect]
     Indication: OFF LABEL USE

REACTIONS (6)
  - Lymphoma [Not Recovered/Not Resolved]
  - Prostate cancer [Recovered/Resolved]
  - Herpes zoster [Not Recovered/Not Resolved]
  - Blood count abnormal [Recovered/Resolved]
  - Wheelchair user [Not Recovered/Not Resolved]
  - Therapeutic response unexpected [Unknown]
